FAERS Safety Report 18076682 (Version 2)
Quarter: 2021Q1

REPORT INFORMATION
  Report Type: Spontaneous
  Country: US (occurrence: US)
  Receive Date: 20200728
  Receipt Date: 20210107
  Transmission Date: 20210419
  Serious: Yes (Death, Hospitalization, Other)
  Sender: FDA-Public Use
  Company Number: US-LUPIN PHARMACEUTICALS INC.-2020-03715

PATIENT
  Age: 76 Year
  Sex: Male

DRUGS (6)
  1. METHYLPREDNISOLONE. [Suspect]
     Active Substance: METHYLPREDNISOLONE
     Indication: GASTRIC DISORDER
     Dosage: 70 MILLIGRAM
     Route: 042
  2. HYDROCODONE AND ACETAMINOPHEN [Suspect]
     Active Substance: ACETAMINOPHEN\HYDROCODONE
     Indication: NEURALGIA
     Dosage: UNK
     Route: 065
  3. PEMBROLIZUMAB. [Suspect]
     Active Substance: PEMBROLIZUMAB
     Indication: NEUROENDOCRINE CARCINOMA OF THE SKIN
     Dosage: 2 MILLIGRAM/KILOGRAM, RECEIVED TOTAL 4 DOSES
     Route: 065
  4. PREDNISONE. [Concomitant]
     Active Substance: PREDNISONE
     Indication: PNEUMONITIS
     Dosage: UNK
     Route: 065
  5. GABAPENTIN. [Concomitant]
     Active Substance: GABAPENTIN
     Indication: NEURALGIA
     Dosage: UNK
     Route: 065
  6. METHYLPREDNISOLONE. [Suspect]
     Active Substance: METHYLPREDNISOLONE
     Indication: VOMITING

REACTIONS (19)
  - Hyperreflexia [Recovering/Resolving]
  - Mobility decreased [Recovering/Resolving]
  - Dysphagia [Not Recovered/Not Resolved]
  - Enteric neuropathy [Fatal]
  - Motor neurone disease [Not Recovered/Not Resolved]
  - Dysmetria [Recovering/Resolving]
  - Hallucination, visual [Recovering/Resolving]
  - Peripheral sensory neuropathy [Not Recovered/Not Resolved]
  - Paraneoplastic neurological syndrome [Fatal]
  - Myoclonus [Recovering/Resolving]
  - Dysdiadochokinesis [Recovering/Resolving]
  - Constipation [Not Recovered/Not Resolved]
  - Atrophy [Recovering/Resolving]
  - Treatment failure [Unknown]
  - Muscle contractions involuntary [Recovering/Resolving]
  - Pharyngeal disorder [Not Recovered/Not Resolved]
  - Intestinal obstruction [None]
  - Pneumonia aspiration [Not Recovered/Not Resolved]
  - Cerebral disorder [Recovering/Resolving]
